FAERS Safety Report 7417285-X (Version None)
Quarter: 2011Q2

REPORT INFORMATION
  Report Type: 
  Country: None (occurrence: None)
  Receive Date: 20110412
  Receipt Date: 20110412
  Transmission Date: 20111010
  Serious: Yes (Life-Threatening, Hospitalization)
  Sender: FDA-Public Use
  Company Number: None

PATIENT
  Age: 25 Year
  Sex: Female
  Weight: 54.4316 kg

DRUGS (4)
  1. ALLEGRA [Suspect]
     Indication: HYPERSENSITIVITY
     Dosage: 1 180MG TAB AS NEEDED
     Dates: start: 20110225
  2. ALLEGRA [Suspect]
     Indication: HYPERSENSITIVITY
     Dosage: 1 180MG TAB AS NEEDED
     Dates: start: 20110312
  3. ALLEGRA [Suspect]
     Indication: HYPERSENSITIVITY
     Dosage: 1 180MG TAB AS NEEDED
     Dates: start: 20101211
  4. FEXOFENADINE [Suspect]
     Dosage: 1 180MG TAB AS NEEDED

REACTIONS (4)
  - LOSS OF CONSCIOUSNESS [None]
  - FALL [None]
  - GAIT DISTURBANCE [None]
  - ALCOHOL POISONING [None]
